FAERS Safety Report 13451248 (Version 1)
Quarter: 2017Q2

REPORT INFORMATION
  Report Type: Spontaneous
  Country: US (occurrence: US)
  Receive Date: 20170418
  Receipt Date: 20170418
  Transmission Date: 20170830
  Serious: No
  Sender: FDA-Public Use
  Company Number: US-LUPIN PHARMACEUTICALS INC.-2016-01628

PATIENT
  Age: 24 Year
  Sex: Female
  Weight: 105.23 kg

DRUGS (1)
  1. MY WAY [Suspect]
     Active Substance: LEVONORGESTREL
     Indication: CONTRACEPTION
     Dosage: 1 DF,QD,
     Route: 065
     Dates: start: 20160401

REACTIONS (3)
  - Fatigue [Unknown]
  - Mood swings [Unknown]
  - Nausea [Unknown]

NARRATIVE: CASE EVENT DATE: 20160402
